FAERS Safety Report 16255612 (Version 2)
Quarter: 2019Q2

REPORT INFORMATION
  Report Type: Spontaneous
  Country: US (occurrence: US)
  Receive Date: 20190430
  Receipt Date: 20190526
  Transmission Date: 20190711
  Serious: No
  Sender: FDA-Public Use
  Company Number: US-AMGEN-USASP2019065663

PATIENT
  Age: 54 Year
  Sex: Male
  Weight: 83.9 kg

DRUGS (1)
  1. REPATHA [Suspect]
     Active Substance: EVOLOCUMAB
     Indication: HYPERCHOLESTEROLAEMIA
     Dosage: 140 MILLIGRAM
     Route: 058
     Dates: start: 201701

REACTIONS (2)
  - Injection site pain [Unknown]
  - Injection site bruising [Recovered/Resolved]
